FAERS Safety Report 9177952 (Version 1)
Quarter: 2013Q1

REPORT INFORMATION
  Report Type: Spontaneous
  Country: US (occurrence: US)
  Receive Date: 20130321
  Receipt Date: 20130321
  Transmission Date: 20140127
  Serious: Yes (Other)
  Sender: FDA-Public Use
  Company Number: US-ASTRAZENECA-2013SE16711

PATIENT
  Age: 77 Year
  Sex: Female
  Weight: 63.5 kg

DRUGS (4)
  1. ATACAND [Suspect]
     Indication: HYPERTENSION
     Route: 048
     Dates: start: 201303
  2. LOSARTAN [Suspect]
  3. CLETAINIDE [Concomitant]
     Indication: ATRIAL FIBRILLATION
  4. WARAFIN [Concomitant]
     Indication: ANTICOAGULANT THERAPY

REACTIONS (2)
  - Activities of daily living impaired [Unknown]
  - Dizziness [Not Recovered/Not Resolved]
